FAERS Safety Report 15988138 (Version 1)
Quarter: 2019Q1

REPORT INFORMATION
  Report Type: Report from Study
  Country: US (occurrence: US)
  Receive Date: 20190220
  Receipt Date: 20190220
  Transmission Date: 20190418
  Serious: Yes (Hospitalization, Other)
  Sender: FDA-Public Use
  Company Number: US-ROCHE-2179880

PATIENT
  Age: 65 Year
  Sex: Female

DRUGS (14)
  1. PROCHLORPERAZINE. [Concomitant]
     Active Substance: PROCHLORPERAZINE
     Route: 065
     Dates: start: 20180816
  2. TRASTUZUMAB. [Suspect]
     Active Substance: TRASTUZUMAB
     Indication: HER-2 POSITIVE BREAST CANCER
     Route: 065
  3. ACETAMINOPHEN. [Concomitant]
     Active Substance: ACETAMINOPHEN
     Dosage: 12 TABLET
     Route: 065
     Dates: start: 20180401
  4. TRASTUZUMAB EMTANSINE [Suspect]
     Active Substance: ADO-TRASTUZUMAB EMTANSINE
     Indication: HER-2 POSITIVE BREAST CANCER
     Dosage: LAST PROTOCL TREATMENT DATE 17/AUG/2018
     Route: 042
     Dates: start: 20180817
  5. PROMAZINE [Concomitant]
     Active Substance: PROMAZINE
     Indication: PROCTALGIA
     Dosage: ROUTE : INTRAVENOUS PYELOGRAM (IVP)
     Route: 042
  6. DENOSUMAB [Concomitant]
     Active Substance: DENOSUMAB
     Route: 065
     Dates: start: 20180720
  7. CALCIUM CITRATE [Concomitant]
     Active Substance: CALCIUM CITRATE
     Dosage: 2 TABLET
     Route: 065
     Dates: start: 20180720
  8. LEVOTHYROXINE. [Concomitant]
     Active Substance: LEVOTHYROXINE
     Dosage: DOSE UNIT:88 MCG
     Route: 065
     Dates: start: 20180815
  9. SYSTANE (HYPROMELLOSE 2910 (4000 MPA.S)) [Concomitant]
     Active Substance: HYPROMELLOSE 2910 (4000 MPA.S)
     Dosage: 2 DROPS
     Route: 065
     Dates: start: 20180720
  10. TRAMADOL HYDROCHLORIDE. [Concomitant]
     Active Substance: TRAMADOL HYDROCHLORIDE
     Route: 065
     Dates: start: 20180720
  11. CITALOPRAM HYDROBROMIDE. [Concomitant]
     Active Substance: CITALOPRAM HYDROBROMIDE
     Route: 065
     Dates: start: 20180816
  12. SULFAMETHOXAZOLE/TRIMETHOPRIM [Concomitant]
     Active Substance: SULFAMETHOXAZOLE\TRIMETHOPRIM
     Dosage: DOSE UNIT:2 TABLET
     Route: 065
     Dates: start: 20180809
  13. TRAMADOL. [Concomitant]
     Active Substance: TRAMADOL
     Indication: PROCTALGIA
  14. SENNA [Concomitant]
     Active Substance: SENNA LEAF\SENNOSIDES\SENNOSIDES A AND B
     Route: 065
     Dates: start: 20180720

REACTIONS (8)
  - Nausea [Recovered/Resolved]
  - Anaemia [Recovered/Resolved]
  - Rectal spasm [Recovered/Resolved]
  - Vomiting [Recovered/Resolved]
  - Proctalgia [Recovered/Resolved]
  - Large intestinal obstruction [Unknown]
  - Constipation [Recovered/Resolved]
  - Vaginal haemorrhage [Unknown]

NARRATIVE: CASE EVENT DATE: 20180822
